FAERS Safety Report 4482399-3 (Version None)
Quarter: 2004Q4

REPORT INFORMATION
  Report Type: 
  Country: None (occurrence: None)
  Receive Date: 20041022
  Receipt Date: 20040423
  Transmission Date: 20050328
  Serious: No
  Sender: FDA-Public Use
  Company Number: US-BRISTOL-MYERS SQUIBB COMPANY-12570651

PATIENT
  Age: 42 Year
  Sex: Male
  Weight: 78 kg

DRUGS (6)
  1. BUSPAR [Suspect]
     Indication: OBSESSIVE-COMPULSIVE DISORDER
     Dosage: DOSAGE: TITRATED UP INTO DIVIDED DOSES OF 7.5MG, 7.5MG AND 5MG (20MG)
     Route: 048
     Dates: start: 20040406
  2. BUSPAR [Suspect]
     Indication: GENERALISED ANXIETY DISORDER
     Dosage: DOSAGE: TITRATED UP INTO DIVIDED DOSES OF 7.5MG, 7.5MG AND 5MG (20MG)
     Route: 048
     Dates: start: 20040406
  3. PREVACID [Concomitant]
  4. SENOKOT [Concomitant]
  5. RISPERDAL [Concomitant]
  6. FIORINAL [Concomitant]

REACTIONS (6)
  - CONFUSIONAL STATE [None]
  - ERECTILE DYSFUNCTION [None]
  - FEELING HOT [None]
  - HYPERHIDROSIS [None]
  - INSOMNIA [None]
  - UNEXPECTED THERAPEUTIC DRUG EFFECT [None]
